FAERS Safety Report 18040272 (Version 1)
Quarter: 2020Q3

REPORT INFORMATION
  Report Type: Spontaneous
  Country: DE (occurrence: DE)
  Receive Date: 20200717
  Receipt Date: 20200717
  Transmission Date: 20201103
  Serious: Yes (Other)
  Sender: FDA-Public Use
  Company Number: NVSC2020DE200223

PATIENT
  Age: 86 Year
  Sex: Male

DRUGS (3)
  1. MTX 10 MG HEXAL INJEKT [Suspect]
     Active Substance: METHOTREXATE SODIUM
     Indication: RHEUMATIC DISORDER
     Dosage: 10 MG, QW
     Route: 065
  2. PREDNISOLON [Suspect]
     Active Substance: PREDNISOLONE
     Indication: RHEUMATIC DISORDER
     Route: 048
  3. AMLODIPIN [Concomitant]
     Active Substance: AMLODIPINE BESYLATE
     Indication: PRODUCT USED FOR UNKNOWN INDICATION
     Dosage: FOR AT LEAST 20 YEARS
     Route: 065

REACTIONS (5)
  - Heart rate irregular [Unknown]
  - Phlebitis [Unknown]
  - Blood pressure increased [Unknown]
  - Bronchitis [Unknown]
  - Arrhythmia [Unknown]
